FAERS Safety Report 9053820 (Version 1)
Quarter: 2013Q1

REPORT INFORMATION
  Report Type: Spontaneous
  Country: US (occurrence: None)
  Receive Date: 20130201
  Receipt Date: 20130201
  Transmission Date: 20140127
  Serious: Yes (Other)
  Sender: FDA-Public Use
  Company Number: None

PATIENT
  Age: 80 Year
  Sex: Female
  Weight: 77.11 kg

DRUGS (1)
  1. MONISTAT3 [Suspect]
     Indication: FUNGAL INFECTION
     Route: 067
     Dates: start: 20130129, end: 20130129

REACTIONS (1)
  - Tachycardia [None]
